FAERS Safety Report 16735334 (Version 1)
Quarter: 2019Q3

REPORT INFORMATION
  Report Type: Spontaneous
  Country: US (occurrence: US)
  Receive Date: 20190708
  Receipt Date: 20190708
  Transmission Date: 20191005
  Serious: Yes (Hospitalization)
  Sender: FDA-Public Use
  Company Number: None

PATIENT
  Age: 17 Year
  Sex: Male

DRUGS (15)
  1. PREDNISONE. [Concomitant]
     Active Substance: PREDNISONE
  2. ZANTAC [Concomitant]
     Active Substance: RANITIDINE HYDROCHLORIDE
  3. ATENOLOL. [Concomitant]
     Active Substance: ATENOLOL
  4. RIZATRIPTAN. [Concomitant]
     Active Substance: RIZATRIPTAN
  5. VIMPAT [Concomitant]
     Active Substance: LACOSAMIDE
  6. QVAR [Concomitant]
     Active Substance: BECLOMETHASONE DIPROPIONATE
  7. ZYRTEC [Concomitant]
     Active Substance: CETIRIZINE HYDROCHLORIDE
  8. PROPRANOLOL [Concomitant]
     Active Substance: PROPRANOLOL HYDROCHLORIDE
  9. XOPENEX [Concomitant]
     Active Substance: LEVALBUTEROL HYDROCHLORIDE
  10. ZONEGRAN [Concomitant]
     Active Substance: ZONISAMIDE
  11. AFINITOR [Suspect]
     Active Substance: EVEROLIMUS
     Indication: BRAIN NEOPLASM MALIGNANT
     Dosage: 5MG 8MG DAILY ORAL
     Dates: start: 20150429
  12. CLONAZEPAM. [Concomitant]
     Active Substance: CLONAZEPAM
  13. OXYCODONE [Concomitant]
     Active Substance: OXYCODONE
  14. PATANASE [Concomitant]
     Active Substance: OLOPATADINE HYDROCHLORIDE
  15. TRILEPTAL [Concomitant]
     Active Substance: OXCARBAZEPINE

REACTIONS (2)
  - Surgery [None]
  - Oral pain [None]

NARRATIVE: CASE EVENT DATE: 20190705
